FAERS Safety Report 4396008-5 (Version None)
Quarter: 2004Q3

REPORT INFORMATION
  Report Type: 
  Country: None (occurrence: None)
  Receive Date: 20040708
  Receipt Date: 20040630
  Transmission Date: 20050211
  Serious: No
  Sender: FDA-Public Use
  Company Number: 2004UW13429

PATIENT
  Sex: Female

DRUGS (2)
  1. ZOMIG [Suspect]
  2. WELLBUTRIN SR [Suspect]
     Indication: DEPRESSION

REACTIONS (2)
  - CONVULSION [None]
  - OVERDOSE [None]
